FAERS Safety Report 16441040 (Version 1)
Quarter: 2019Q2

REPORT INFORMATION
  Report Type: Spontaneous
  Country: LK (occurrence: LK)
  Receive Date: 20190617
  Receipt Date: 20190617
  Transmission Date: 20190711
  Serious: Yes (Hospitalization)
  Sender: FDA-Public Use
  Company Number: LK-VIRTUS PHARMACEUTICALS, LLC-2019VTS00030

PATIENT
  Age: 7 Year
  Sex: Female

DRUGS (2)
  1. RIFAMPIN. [Concomitant]
     Active Substance: RIFAMPIN
     Indication: LEPROSY
     Dosage: UNK
     Route: 065
  2. DAPSONE. [Suspect]
     Active Substance: DAPSONE
     Indication: LEPROSY
     Dosage: UNK
     Route: 065

REACTIONS (8)
  - Neutropenic sepsis [Recovered/Resolved]
  - Dysphagia [Recovered/Resolved]
  - Stridor [Recovered/Resolved]
  - Mucosal inflammation [Recovered/Resolved]
  - Cellulitis [Recovered/Resolved]
  - Dyspnoea [Recovered/Resolved]
  - Abscess [Recovered/Resolved]
  - Agranulocytosis [Recovered/Resolved]
